FAERS Safety Report 6266414-2 (Version None)
Quarter: 2009Q3

REPORT INFORMATION
  Report Type: 
  Country: None (occurrence: None)
  Receive Date: 20090713
  Receipt Date: 20090705
  Transmission Date: 20100115
  Serious: Yes (Other)
  Sender: FDA-Public Use
  Company Number: US-AVENTIS-200915945US

PATIENT
  Age: 66 Year
  Sex: Female

DRUGS (4)
  1. LANTUS [Suspect]
     Route: 058
  2. MACROBID                           /00024401/ [Concomitant]
     Dosage: DOSE: UNK
  3. PREDNISONE [Concomitant]
     Dosage: DOSE: UNK
  4. ACYCLOVIR [Concomitant]
     Dosage: DOSE: UNK

REACTIONS (3)
  - BLOOD GLUCOSE INCREASED [None]
  - ESCHERICHIA BACTERAEMIA [None]
  - FACIAL PALSY [None]
